FAERS Safety Report 11990367 (Version 2)
Quarter: 2016Q1

REPORT INFORMATION
  Report Type: Spontaneous
  Country: US (occurrence: US)
  Receive Date: 20160202
  Receipt Date: 20160329
  Transmission Date: 20160526
  Serious: No
  Sender: FDA-Public Use
  Company Number: US-ACTELION PHARMACEUTICALS US, INC.-A-US2016-130785

PATIENT
  Age: 62 Year
  Sex: Female

DRUGS (13)
  1. OPSUMIT [Suspect]
     Active Substance: MACITENTAN
     Indication: PULMONARY ARTERIAL HYPERTENSION
     Dosage: 10 MG, UNK
     Route: 048
     Dates: start: 20140108
  2. RIOCIGUAT [Suspect]
     Active Substance: RIOCIGUAT
     Indication: PRODUCT USED FOR UNKNOWN INDICATION
     Dosage: 2 MG, UNK
     Route: 065
  3. LYSTEDA [Concomitant]
     Active Substance: TRANEXAMIC ACID
  4. IRON [Concomitant]
     Active Substance: IRON
  5. CALCIUM + VITAMIN D [Concomitant]
     Active Substance: CALCIUM\VITAMIN D
  6. PREMARIN [Concomitant]
     Active Substance: ESTROGENS, CONJUGATED
  7. GEMFIBROZIL. [Concomitant]
     Active Substance: GEMFIBROZIL
  8. GABAPENTIN. [Concomitant]
     Active Substance: GABAPENTIN
  9. AVASTIN [Concomitant]
     Active Substance: BEVACIZUMAB
  10. TYVASO [Concomitant]
     Active Substance: TREPROSTINIL
  11. DIGOXIN. [Concomitant]
     Active Substance: DIGOXIN
  12. ALBUTEROL. [Concomitant]
     Active Substance: ALBUTEROL
  13. TRANEXAMIC ACID. [Concomitant]
     Active Substance: TRANEXAMIC ACID

REACTIONS (4)
  - Muscle spasms [Not Recovered/Not Resolved]
  - Fluid retention [Not Recovered/Not Resolved]
  - Dyspnoea [Recovered/Resolved]
  - Palpitations [Recovered/Resolved]

NARRATIVE: CASE EVENT DATE: 20160124
